FAERS Safety Report 24428775 (Version 2)
Quarter: 2024Q4

REPORT INFORMATION
  Report Type: Spontaneous
  Country: JP (occurrence: JP)
  Receive Date: 20241011
  Receipt Date: 20241213
  Transmission Date: 20250114
  Serious: Yes (Other)
  Sender: UCB
  Company Number: JP-UCBJ-CD202409483UCBPHAPROD

PATIENT
  Age: 8 Year
  Sex: Male

DRUGS (3)
  1. VIMPAT [Suspect]
     Active Substance: LACOSAMIDE
     Indication: Epilepsy
     Dosage: UNK
     Route: 048
  2. LEVETIRACETAM [Concomitant]
     Active Substance: LEVETIRACETAM
     Indication: Epilepsy
     Dosage: UNK
  3. FOSCARNET SODIUM [Concomitant]
     Active Substance: FOSCARNET SODIUM
     Indication: Encephalitis autoimmune
     Dosage: UNK

REACTIONS (5)
  - Epilepsy [Unknown]
  - Cerebral atrophy [Unknown]
  - Infantile spasms [Unknown]
  - Speech disorder [Unknown]
  - Therapeutic response decreased [Unknown]
